FAERS Safety Report 13871044 (Version 2)
Quarter: 2017Q3

REPORT INFORMATION
  Report Type: Spontaneous
  Country: AT (occurrence: AT)
  Receive Date: 20170816
  Receipt Date: 20170926
  Transmission Date: 20171127
  Serious: Yes (Other)
  Sender: FDA-Public Use
  Company Number: AT-ROCHE-1978889

PATIENT
  Age: 40 Year
  Sex: Female

DRUGS (1)
  1. XOLAIR [Suspect]
     Active Substance: OMALIZUMAB
     Indication: CHRONIC SPONTANEOUS URTICARIA
     Route: 058
     Dates: start: 20170808

REACTIONS (8)
  - Skin discolouration [Unknown]
  - Oedema [Unknown]
  - Rash [Unknown]
  - Swelling [Unknown]
  - Urticaria [Unknown]
  - Hypotension [Recovered/Resolved]
  - Angioedema [Recovered/Resolved]
  - Pruritus [Unknown]
